FAERS Safety Report 15566353 (Version 1)
Quarter: 2018Q4

REPORT INFORMATION
  Report Type: Spontaneous
  Country: US (occurrence: US)
  Receive Date: 20181025
  Receipt Date: 20181025
  Transmission Date: 20190205
  Serious: No
  Sender: FDA-Public Use
  Company Number: None

PATIENT
  Age: 39 Year
  Sex: Male

DRUGS (3)
  1. TALTZ [Suspect]
     Active Substance: IXEKIZUMAB
     Indication: PALMOPLANTAR PUSTULOSIS
     Dosage: ?          OTHER FREQUENCY:EVERY 4 WKS, AS DI;?
     Route: 058
     Dates: start: 201704
  2. TALTZ [Suspect]
     Active Substance: IXEKIZUMAB
     Indication: PSORIASIS
     Dosage: ?          OTHER FREQUENCY:EVERY 4 WKS, AS DI;?
     Route: 058
     Dates: start: 201704
  3. TALTZ [Suspect]
     Active Substance: IXEKIZUMAB
     Indication: PSORIASIS

REACTIONS (3)
  - Oral herpes [None]
  - Acarodermatitis [None]
  - Skin swelling [None]
